APPROVED DRUG PRODUCT: FULVICIN P/G 165
Active Ingredient: GRISEOFULVIN, ULTRAMICROSIZE
Strength: 165MG
Dosage Form/Route: TABLET;ORAL
Application: A061996 | Product #003
Applicant: CHARTWELL RX SCIENCES LLC
Approved: Apr 6, 1982 | RLD: No | RS: No | Type: RX